FAERS Safety Report 8742136 (Version 3)
Quarter: 2012Q4

REPORT INFORMATION
  Report Type: Report from Study
  Country: CN (occurrence: CN)
  Receive Date: 20120824
  Receipt Date: 20121105
  Transmission Date: 20130627
  Serious: Yes (Hospitalization)
  Sender: FDA-Public Use
  Company Number: PHHY2012CN071241

PATIENT
  Age: 31 Year
  Sex: Male
  Weight: 62 kg

DRUGS (2)
  1. MYCOPHENOLIC ACID [Suspect]
     Indication: PROPHYLAXIS AGAINST TRANSPLANT REJECTION
     Dosage: 1000 mg, UNK
     Route: 048
     Dates: start: 20120427, end: 20120813
  2. TACROLIMUS [Concomitant]
     Indication: PROPHYLAXIS AGAINST TRANSPLANT REJECTION
     Dosage: 4 mg, BID
     Dates: start: 20120702

REACTIONS (5)
  - Gastrointestinal haemorrhage [Unknown]
  - Melaena [Recovered/Resolved]
  - Lung infection [Recovering/Resolving]
  - Pneumonia [Unknown]
  - Pyrexia [Recovered/Resolved]
